FAERS Safety Report 11880932 (Version 2)
Quarter: 2016Q4

REPORT INFORMATION
  Report Type: Spontaneous
  Country: JP (occurrence: JP)
  Receive Date: 20151230
  Receipt Date: 20161130
  Transmission Date: 20170206
  Serious: Yes (Hospitalization, Other)
  Sender: FDA-Public Use
  Company Number: JP-VALIDUS PHARMACEUTICALS LLC-JP-2015VAL000822

PATIENT
  Age: 64 Year
  Sex: Male

DRUGS (1)
  1. CARBAMAZEPINE. [Suspect]
     Active Substance: CARBAMAZEPINE
     Indication: DIABETIC NEUROPATHY
     Dosage: UNK

REACTIONS (9)
  - Rash [Recovered/Resolved]
  - Eosinophilia [Recovered/Resolved]
  - Drug reaction with eosinophilia and systemic symptoms [Recovered/Resolved]
  - Pyrexia [Recovered/Resolved]
  - Lymphadenopathy [Recovered/Resolved]
  - Cytomegalovirus infection [Recovered/Resolved]
  - Interstitial lung disease [Recovered/Resolved]
  - Dyspnoea [Recovered/Resolved]
  - Liver disorder [Recovered/Resolved]
